FAERS Safety Report 7579929-1 (Version None)
Quarter: 2011Q2

REPORT INFORMATION
  Report Type: 
  Country: None (occurrence: None)
  Receive Date: 20110527
  Receipt Date: 20100816
  Transmission Date: 20111010
  Serious: Yes (Life-Threatening)
  Sender: FDA-Public Use
  Company Number: 2010SCPR001998

PATIENT
  Age: 77 Year
  Sex: Male

DRUGS (5)
  1. ASPIRIN [Concomitant]
  2. GEMFIBROZIL [Concomitant]
  3. GLIMEPIRIDE [Concomitant]
  4. CAPTOPRIL [Suspect]
     Indication: PRODUCT USED FOR UNKNOWN INDICATION
  5. GIAFORNIL (METFORMIN) [Concomitant]

REACTIONS (1)
  - ANGIOEDEMA [None]
